FAERS Safety Report 5747855-6 (Version None)
Quarter: 2008Q2

REPORT INFORMATION
  Report Type: 
  Country: None (occurrence: None)
  Receive Date: 20080523
  Receipt Date: 20080512
  Transmission Date: 20081010
  Serious: Yes (Hospitalization, Other)
  Sender: FDA-Public Use
  Company Number: US-MERCK-0705USA02830

PATIENT
  Age: 61 Year
  Sex: Female
  Weight: 63 kg

DRUGS (6)
  1. FOSAMAX [Suspect]
     Indication: OSTEOPOROSIS
     Route: 048
     Dates: end: 20030201
  2. FOSAMAX [Suspect]
     Route: 048
     Dates: start: 20030201, end: 20060101
  3. PREMARIN [Concomitant]
     Indication: HOT FLUSH
     Route: 065
     Dates: start: 19830101, end: 20060101
  4. PROVERA [Concomitant]
     Route: 065
  5. LASIX [Concomitant]
     Indication: OEDEMA PERIPHERAL
     Route: 065
     Dates: start: 19800101
  6. VICODIN [Concomitant]
     Route: 065

REACTIONS (9)
  - CARDIOMEGALY [None]
  - CEREBRAL ISCHAEMIA [None]
  - CEREBROVASCULAR ACCIDENT [None]
  - HEART RATE IRREGULAR [None]
  - MELANOCYTIC NAEVUS [None]
  - MITRAL VALVE DISEASE [None]
  - MUSCULOSKELETAL DISORDER [None]
  - TEMPOROMANDIBULAR JOINT SYNDROME [None]
  - TOE OPERATION [None]
